FAERS Safety Report 25871948 (Version 2)
Quarter: 2025Q4

REPORT INFORMATION
  Report Type: Spontaneous
  Country: US (occurrence: US)
  Receive Date: 20251002
  Receipt Date: 20251010
  Transmission Date: 20260118
  Serious: Yes (Other)
  Sender: TEVA
  Company Number: US-TEVA-VS-3372429

PATIENT
  Age: 45 Year
  Sex: Female

DRUGS (3)
  1. DIAZOXIDE [Suspect]
     Active Substance: DIAZOXIDE
     Indication: Insulinoma
     Route: 065
  2. DIAZOXIDE [Suspect]
     Active Substance: DIAZOXIDE
     Indication: Nesidioblastosis
  3. DEVICE [Suspect]
     Active Substance: DEVICE

REACTIONS (2)
  - Hypoglycaemia [Unknown]
  - Drug intolerance [Unknown]
